FAERS Safety Report 24072449 (Version 2)
Quarter: 2024Q3

REPORT INFORMATION
  Report Type: Spontaneous
  Country: US (occurrence: US)
  Receive Date: 20240710
  Receipt Date: 20240715
  Transmission Date: 20241016
  Serious: No
  Sender: ELI LILLY AND CO
  Company Number: US-ELI_LILLY_AND_COMPANY-US202407006158

PATIENT
  Age: 26 Year
  Sex: Female

DRUGS (28)
  1. HUMULIN R U-500 [Suspect]
     Active Substance: INSULIN HUMAN
     Indication: Product used for unknown indication
     Dosage: 50 U, TID (IF BLOOD SUGAR IS LESS THAN 100)
     Route: 065
  2. HUMULIN R U-500 [Suspect]
     Active Substance: INSULIN HUMAN
     Indication: Product used for unknown indication
     Dosage: 50 U, TID (IF BLOOD SUGAR IS LESS THAN 100)
     Route: 065
  3. HUMULIN R U-500 [Suspect]
     Active Substance: INSULIN HUMAN
     Dosage: 100 U, TID (IF BLOOD SUGAR IS 100-200)
     Route: 065
  4. HUMULIN R U-500 [Suspect]
     Active Substance: INSULIN HUMAN
     Dosage: 100 U, TID (IF BLOOD SUGAR IS 100-200)
     Route: 065
  5. HUMULIN R U-500 [Suspect]
     Active Substance: INSULIN HUMAN
     Dosage: 105 U, TID ( IF BLOOD SUGAR IS 201-250)
     Route: 065
  6. HUMULIN R U-500 [Suspect]
     Active Substance: INSULIN HUMAN
     Dosage: 105 U, TID ( IF BLOOD SUGAR IS 201-250)
     Route: 065
  7. HUMULIN R U-500 [Suspect]
     Active Substance: INSULIN HUMAN
     Dosage: 110 U, TID (IF BLOOD SUGAR IS 251-300)
     Route: 065
  8. HUMULIN R U-500 [Suspect]
     Active Substance: INSULIN HUMAN
     Dosage: 110 U, TID (IF BLOOD SUGAR IS 251-300)
     Route: 065
  9. HUMULIN R U-500 [Suspect]
     Active Substance: INSULIN HUMAN
     Dosage: 115 U, TID (IF BLOOD SUGAR IS 301-350)
     Route: 065
  10. HUMULIN R U-500 [Suspect]
     Active Substance: INSULIN HUMAN
     Dosage: 115 U, TID (IF BLOOD SUGAR IS 301-350)
     Route: 065
  11. HUMULIN R U-500 [Suspect]
     Active Substance: INSULIN HUMAN
     Dosage: 120 U, TID (IF BLOOD SUGAR IS 350-400)
     Route: 065
  12. HUMULIN R U-500 [Suspect]
     Active Substance: INSULIN HUMAN
     Dosage: 120 U, TID (IF BLOOD SUGAR IS 350-400)
     Route: 065
  13. HUMULIN R U-500 [Suspect]
     Active Substance: INSULIN HUMAN
     Dosage: 125 U, TID (IF BLOOD SUGAR ABOVE 400)
     Route: 065
  14. HUMULIN R U-500 [Suspect]
     Active Substance: INSULIN HUMAN
     Dosage: 125 U, TID (IF BLOOD SUGAR ABOVE 400)
     Route: 065
  15. HUMULIN R U-500 [Suspect]
     Active Substance: INSULIN HUMAN
     Dosage: 50 U, TID (IF BLOOD SUGAR IS LESS THAN 100)
     Route: 065
  16. HUMULIN R U-500 [Suspect]
     Active Substance: INSULIN HUMAN
     Dosage: 50 U, TID (IF BLOOD SUGAR IS LESS THAN 100)
     Route: 065
  17. HUMULIN R U-500 [Suspect]
     Active Substance: INSULIN HUMAN
     Dosage: 100 U, TID (IF BLOOD SUGAR IS 100-200)
     Route: 065
  18. HUMULIN R U-500 [Suspect]
     Active Substance: INSULIN HUMAN
     Dosage: 100 U, TID (IF BLOOD SUGAR IS 100-200)
     Route: 065
  19. HUMULIN R U-500 [Suspect]
     Active Substance: INSULIN HUMAN
     Dosage: 105 U, TID ( IF BLOOD SUGAR IS 201-250)
     Route: 065
  20. HUMULIN R U-500 [Suspect]
     Active Substance: INSULIN HUMAN
     Dosage: 105 U, TID ( IF BLOOD SUGAR IS 201-250)
     Route: 065
  21. HUMULIN R U-500 [Suspect]
     Active Substance: INSULIN HUMAN
     Dosage: 110 U, TID (IF BLOOD SUGAR IS 251-300)
     Route: 065
  22. HUMULIN R U-500 [Suspect]
     Active Substance: INSULIN HUMAN
     Dosage: 110 U, TID (IF BLOOD SUGAR IS 251-300)
     Route: 065
  23. HUMULIN R U-500 [Suspect]
     Active Substance: INSULIN HUMAN
     Dosage: 115 U, TID (IF BLOOD SUGAR IS 301-350)
     Route: 065
  24. HUMULIN R U-500 [Suspect]
     Active Substance: INSULIN HUMAN
     Dosage: 115 U, TID (IF BLOOD SUGAR IS 301-350)
     Route: 065
  25. HUMULIN R U-500 [Suspect]
     Active Substance: INSULIN HUMAN
     Dosage: 120 U, TID (IF BLOOD SUGAR IS 350-400)
     Route: 065
  26. HUMULIN R U-500 [Suspect]
     Active Substance: INSULIN HUMAN
     Dosage: 120 U, TID (IF BLOOD SUGAR IS 350-400)
     Route: 065
  27. HUMULIN R U-500 [Suspect]
     Active Substance: INSULIN HUMAN
     Dosage: 125 U, TID (IF BLOOD SUGAR ABOVE 400)
     Route: 065
  28. HUMULIN R U-500 [Suspect]
     Active Substance: INSULIN HUMAN
     Dosage: 125 U, TID (IF BLOOD SUGAR ABOVE 400)
     Route: 065

REACTIONS (2)
  - Blood glucose increased [Unknown]
  - Incorrect dose administered [Unknown]
